FAERS Safety Report 5123434-9 (Version None)
Quarter: 2006Q4

REPORT INFORMATION
  Report Type: 
  Country: None (occurrence: None)
  Receive Date: 20061005
  Receipt Date: 20060926
  Transmission Date: 20070319
  Serious: Yes (Hospitalization)
  Sender: FDA-Public Use
  Company Number: 2006116929

PATIENT
  Age: 53 Year
  Sex: Female

DRUGS (4)
  1. PREGABALIN (PREGABALIN) [Suspect]
     Indication: PAIN
     Dosage: 450 MG (150 MG, 3 IN 1 D), ORAL
     Route: 048
     Dates: end: 20060808
  2. INSULATARD NPH HUMAN [Concomitant]
  3. NOVORAPID (INSULIN ASPART) [Concomitant]
  4. ATENOLOL [Concomitant]

REACTIONS (1)
  - PSYCHOTIC DISORDER [None]
